FAERS Safety Report 10029956 (Version 2)
Quarter: 2014Q1

REPORT INFORMATION
  Report Type: Spontaneous
  Country: US (occurrence: US)
  Receive Date: 20140323
  Receipt Date: 20140323
  Transmission Date: 20141002
  Serious: No
  Sender: FDA-Public Use
  Company Number: US-ALLERGAN-1306120US

PATIENT
  Age: 55 Year
  Sex: Female

DRUGS (6)
  1. LATISSE 0.03% [Suspect]
     Indication: GROWTH OF EYELASHES
     Dosage: 2 GTT, QHS
     Route: 061
  2. LATISSE 0.03% [Suspect]
     Dosage: 2 GTT, UNK
     Route: 061
  3. BABY ASA [Concomitant]
     Indication: PRODUCT USED FOR UNKNOWN INDICATION
     Dosage: 81 MG, QPM
     Route: 048
  4. PANTOPRAZOLE SODIUM [Concomitant]
     Indication: GASTROOESOPHAGEAL REFLUX DISEASE
     Dosage: 40 MG, QD
     Route: 048
     Dates: start: 201205
  5. EVISTA                             /01303201/ [Concomitant]
     Indication: BREAST CANCER
     Dosage: 60 MG, QD
     Route: 048
     Dates: start: 2012
  6. CLARITIN-D [Concomitant]
     Indication: SEASONAL ALLERGY
     Dosage: UNK
     Route: 048

REACTIONS (7)
  - Inappropriate schedule of drug administration [Unknown]
  - Accidental exposure to product [Unknown]
  - Eye irritation [Recovered/Resolved]
  - Eye discharge [Recovered/Resolved]
  - Drug ineffective [Unknown]
  - Madarosis [Unknown]
  - Madarosis [Unknown]
